FAERS Safety Report 14902170 (Version 1)
Quarter: 2018Q2

REPORT INFORMATION
  Report Type: Spontaneous
  Country: US (occurrence: US)
  Receive Date: 20180516
  Receipt Date: 20180516
  Transmission Date: 20180711
  Serious: No
  Sender: FDA-Public Use
  Company Number: US-BEH-2018090660

PATIENT
  Age: 68 Year
  Sex: Female

DRUGS (17)
  1. HIZENTRA [Suspect]
     Active Substance: HUMAN IMMUNOGLOBULIN G
     Indication: HYPOGAMMAGLOBULINAEMIA
     Dosage: 8 G, QW
     Route: 058
     Dates: start: 20180405
  2. GLIMEPIRIDE. [Concomitant]
     Active Substance: GLIMEPIRIDE
     Dosage: 1 MG, TAB
     Route: 065
     Dates: start: 20180330
  3. FUROSEMIDE. [Concomitant]
     Active Substance: FUROSEMIDE
     Dosage: 40 MG, TAB
     Route: 065
     Dates: start: 20180330
  4. SINGULAIR [Concomitant]
     Active Substance: MONTELUKAST SODIUM
     Dosage: 5 MG, CHVV
     Route: 065
     Dates: start: 20180330
  5. XARELTO [Concomitant]
     Active Substance: RIVAROXABAN
     Dosage: 20 MG, TAB
     Route: 065
     Dates: start: 20180330
  6. ZYFLO [Concomitant]
     Active Substance: ZILEUTON
     Dosage: 600 MG, TAB
     Route: 065
     Dates: start: 20180330
  7. COLECALCIFEROL [Concomitant]
     Active Substance: CHOLECALCIFEROL
     Dosage: UNK
     Route: 065
     Dates: start: 20180330
  8. DILTIAZEM. [Concomitant]
     Active Substance: DILTIAZEM
     Dosage: 240 MG ER, CAP
     Route: 065
     Dates: start: 20180330
  9. LOSARTAN POTASSIUM. [Concomitant]
     Active Substance: LOSARTAN POTASSIUM
     Dosage: 25 MG, TAB
     Route: 065
     Dates: start: 20180330
  10. PRAVASTATIN. [Concomitant]
     Active Substance: PRAVASTATIN
     Dosage: 10 MG, TAB
     Route: 065
     Dates: start: 20180330
  11. CITALOPRAM [Concomitant]
     Active Substance: CITALOPRAM HYDROBROMIDE
     Dosage: 10 MG, TAB
     Route: 065
     Dates: start: 20180330
  12. HIZENTRA [Suspect]
     Active Substance: HUMAN IMMUNOGLOBULIN G
     Dosage: 8 G, TOT
     Route: 058
  13. JANUVIA [Concomitant]
     Active Substance: SITAGLIPTIN PHOSPHATE
     Dosage: 50 MG, TAB
     Route: 065
     Dates: start: 20180330
  14. POTASSIUM                          /00031402/ [Concomitant]
     Active Substance: POTASSIUM
     Dosage: UNK
     Route: 065
     Dates: start: 20180330
  15. ALPRAZOLAM. [Concomitant]
     Active Substance: ALPRAZOLAM
     Dosage: 0.5 MG, TAB
     Route: 065
     Dates: start: 20180330
  16. PROAIR HFA [Concomitant]
     Active Substance: ALBUTEROL SULFATE
     Dosage: UNK, AER
     Route: 065
     Dates: start: 20180330
  17. MULTAQ [Concomitant]
     Active Substance: DRONEDARONE
     Dosage: 400 MG, TAB
     Route: 065
     Dates: start: 20180330

REACTIONS (1)
  - Rash generalised [Unknown]
